FAERS Safety Report 9663645 (Version 1)
Quarter: 2013Q4

REPORT INFORMATION
  Report Type: Spontaneous
  Country: FR (occurrence: FR)
  Receive Date: 20131101
  Receipt Date: 20131101
  Transmission Date: 20140711
  Serious: Yes (Death, Hospitalization)
  Sender: FDA-Public Use
  Company Number: FR-B.I. PHARMACEUTICALS,INC./RIDGEFIELD-2013-FF-02618FF

PATIENT
  Age: 58 Year
  Sex: Female

DRUGS (6)
  1. PRADAXA [Suspect]
     Indication: ATRIAL FIBRILLATION
     Dosage: 220 MG
     Route: 048
     Dates: start: 20130521
  2. ALPRAZOLAM [Concomitant]
  3. IMOVANE [Concomitant]
  4. LYRICA [Concomitant]
  5. MOVICOL [Concomitant]
  6. PAROXETINE BASE [Concomitant]

REACTIONS (1)
  - Drug ineffective [Fatal]
